FAERS Safety Report 10428405 (Version 2)
Quarter: 2014Q3

REPORT INFORMATION
  Report Type: Report from Study
  Country: US (occurrence: US)
  Receive Date: 20140903
  Receipt Date: 20140903
  Transmission Date: 20150326
  Serious: Yes (Hospitalization, Other)
  Sender: FDA-Public Use
  Company Number: US-ABBVIE-08P-163-0434163-00

PATIENT
  Age: 66 Year
  Sex: Female
  Weight: 102.3 kg

DRUGS (6)
  1. LYRICA [Concomitant]
     Active Substance: PREGABALIN
     Indication: NEUROPATHY PERIPHERAL
     Route: 048
     Dates: start: 200710
  2. TRAMADOL [Concomitant]
     Active Substance: TRAMADOL
     Indication: ARTHRALGIA
     Route: 048
     Dates: start: 2005
  3. HUMIRA [Suspect]
     Active Substance: ADALIMUMAB
     Indication: RHEUMATOID ARTHRITIS
     Route: 058
     Dates: start: 200708
  4. HUMIRA [Suspect]
     Active Substance: ADALIMUMAB
     Indication: RHEUMATOID ARTHRITIS
     Route: 058
     Dates: start: 200612, end: 200708
  5. ARTHROTEC [Concomitant]
     Active Substance: DICLOFENAC SODIUM\MISOPROSTOL
     Indication: RHEUMATOID ARTHRITIS
     Route: 048
     Dates: start: 2006
  6. LORTAB [Concomitant]
     Active Substance: ACETAMINOPHEN\HYDROCODONE BITARTRATE
     Indication: PAIN
     Dates: start: 2012

REACTIONS (24)
  - Gait disturbance [Unknown]
  - Hypertension [Unknown]
  - Neck pain [Unknown]
  - Cataract [Unknown]
  - Dizziness [Unknown]
  - Pain in extremity [Unknown]
  - Coronary arterial stent insertion [Unknown]
  - Thrombosis [Recovered/Resolved]
  - Pollakiuria [Unknown]
  - Rheumatoid arthritis [Recovering/Resolving]
  - Fungal infection [Unknown]
  - Rheumatoid arthritis [Unknown]
  - Urinary tract infection [Not Recovered/Not Resolved]
  - Neuropathy peripheral [Unknown]
  - Catheterisation cardiac abnormal [Unknown]
  - Systemic lupus erythematosus [Unknown]
  - Dysuria [Unknown]
  - Reading disorder [Unknown]
  - Vision blurred [Unknown]
  - Laboratory test abnormal [Unknown]
  - Pain [Unknown]
  - Renal disorder [Recovered/Resolved]
  - Unevaluable event [Unknown]
  - Facial pain [Unknown]

NARRATIVE: CASE EVENT DATE: 2006
